FAERS Safety Report 22325763 (Version 1)
Quarter: 2023Q2

REPORT INFORMATION
  Report Type: Spontaneous
  Country: US (occurrence: US)
  Receive Date: 20230516
  Receipt Date: 20230516
  Transmission Date: 20230722
  Serious: Yes (Other)
  Sender: FDA-Public Use
  Company Number: US-ANIPHARMA-2023-US-003845

PATIENT
  Age: 49 Year
  Sex: Male

DRUGS (1)
  1. CORTICOTROPIN [Suspect]
     Active Substance: CORTICOTROPIN
     Indication: Dermatomyositis
     Dosage: INJECT 80 UNITS (1ML) SUBCUTANEOUSLY THREE TIMES
     Route: 058

REACTIONS (1)
  - Delirium [Not Recovered/Not Resolved]
